FAERS Safety Report 8620577 (Version 3)
Quarter: 2012Q4

REPORT INFORMATION
  Report Type: 
  Country: DE (occurrence: DE)
  Receive Date: 20120618
  Receipt Date: 20121105
  Transmission Date: 20130627
  Serious: Yes (Life-Threatening)
  Sender: FDA-Public Use
  Company Number: DE-B.I. PHARMACEUTICALS,INC./RIDGEFIELD-2012-DE-01478DE

PATIENT
  Age: 78 Year
  Sex: Male
  Weight: 90 kg

DRUGS (6)
  1. PRADAXA [Suspect]
     Indication: ATRIAL FIBRILLATION
     Route: 048
     Dates: end: 20120613
  2. ASS [Suspect]
     Indication: CORONARY ARTERY DISEASE
     Dosage: 100 mg
     Route: 048
     Dates: end: 20120613
  3. ASS [Suspect]
     Indication: CORONARY ARTERY BYPASS
  4. METOPROLOL [Concomitant]
     Indication: CORONARY ARTERY DISEASE
     Route: 048
  5. METOPROLOL [Concomitant]
     Indication: ATRIAL FIBRILLATION
  6. FUROSEMIDE [Concomitant]
     Indication: CARDIAC FAILURE
     Route: 048

REACTIONS (7)
  - Renal failure [Unknown]
  - Gastric haemorrhage [Not Recovered/Not Resolved]
  - Pharyngeal haemorrhage [Not Recovered/Not Resolved]
  - Shock haemorrhagic [Not Recovered/Not Resolved]
  - Overdose [Not Recovered/Not Resolved]
  - Melaena [Not Recovered/Not Resolved]
  - Epistaxis [Not Recovered/Not Resolved]
